FAERS Safety Report 8966163 (Version 1)
Quarter: 2012Q4

REPORT INFORMATION
  Report Type: 
  Country: US (occurrence: US)
  Receive Date: 20121217
  Receipt Date: 20121217
  Transmission Date: 20130627
  Serious: No
  Sender: FDA-Public Use
  Company Number: US-PFIZER INC-2012313996

PATIENT
  Age: 50 Year
  Sex: Female
  Weight: 68 kg

DRUGS (5)
  1. PREMARIN [Suspect]
     Indication: HORMONE REPLACEMENT THERAPY
     Dosage: 0.625 mg, 1x/day
     Route: 048
     Dates: end: 201212
  2. PROTONIX [Suspect]
     Indication: ACID REFLUX (ESOPHAGEAL)
     Dosage: 40 mg, 1x/day
     Route: 048
     Dates: end: 201212
  3. CLARITIN-D [Concomitant]
     Indication: ALLERGY
     Dosage: UNK, 1x/day
  4. AMITRIPTYLINE [Concomitant]
     Indication: MIGRAINE
     Dosage: 25 mg, UNK
  5. LEVOTHYROXINE [Concomitant]
     Indication: UNSPECIFIED DISORDER OF THYROID
     Dosage: 75 mg, UNK

REACTIONS (2)
  - Headache [Unknown]
  - Fatigue [Unknown]
